FAERS Safety Report 8781634 (Version 1)
Quarter: 2012Q4

REPORT INFORMATION
  Report Type: Report from Study
  Country: US (occurrence: US)
  Receive Date: 20120913
  Receipt Date: 20120913
  Transmission Date: 20130627
  Serious: No
  Sender: FDA-Public Use
  Company Number: US-VERTEX PHARMACEUTICAL INC.-AE-2012-007865

PATIENT
  Age: 47 Year
  Sex: Female
  Weight: 46.36 kg

DRUGS (7)
  1. INCIVEK [Suspect]
     Indication: HEPATITIS C
     Route: 048
     Dates: start: 20120515
  2. PEGASYS [Concomitant]
     Indication: HEPATITIS C
     Route: 058
     Dates: start: 20120515
  3. RIBAVIRIN [Concomitant]
     Indication: HEPATITIS C
     Route: 048
     Dates: start: 20120515
  4. DEPO-PROVERA [Concomitant]
  5. VALTREX [Concomitant]
  6. ALEVE [Concomitant]
  7. VITAMIN D [Concomitant]

REACTIONS (5)
  - Dehydration [Not Recovered/Not Resolved]
  - Influenza like illness [Not Recovered/Not Resolved]
  - Headache [Not Recovered/Not Resolved]
  - Tearfulness [Not Recovered/Not Resolved]
  - Fatigue [Unknown]
